FAERS Safety Report 11598493 (Version 1)
Quarter: 2015Q3

REPORT INFORMATION
  Report Type: Spontaneous
  Country: US (occurrence: US)
  Receive Date: 20150916
  Receipt Date: 20150916
  Transmission Date: 20151125
  Serious: No
  Sender: FDA-Public Use
  Company Number: US-ELI_LILLY_AND_COMPANY-US200712003240

PATIENT
  Sex: Female

DRUGS (3)
  1. FORTEO [Suspect]
     Active Substance: TERIPARATIDE
     Dates: start: 20071127
  2. FORTEO [Suspect]
     Active Substance: TERIPARATIDE
     Dates: start: 2003, end: 2005
  3. FORTEO [Suspect]
     Active Substance: TERIPARATIDE

REACTIONS (6)
  - Urticaria [Recovered/Resolved]
  - Injection site bruising [Recovered/Resolved]
  - Blood calcium increased [Recovered/Resolved]
  - Bone density decreased [Not Recovered/Not Resolved]
  - Injection site erythema [Recovered/Resolved]
  - Injection site pain [Recovered/Resolved]

NARRATIVE: CASE EVENT DATE: 2007
